FAERS Safety Report 21046994 (Version 1)
Quarter: 2022Q3

REPORT INFORMATION
  Report Type: Spontaneous
  Country: US (occurrence: None)
  Receive Date: 20220706
  Receipt Date: 20220706
  Transmission Date: 20221026
  Serious: No
  Sender: FDA-Public Use
  Company Number: 2022A230920

PATIENT
  Age: 24997 Day
  Sex: Female
  Weight: 76.7 kg

DRUGS (1)
  1. SYMBICORT [Suspect]
     Active Substance: BUDESONIDE\FORMOTEROL FUMARATE DIHYDRATE
     Indication: Cough
     Route: 055
     Dates: start: 20220503

REACTIONS (4)
  - Intentional dose omission [Unknown]
  - Product use in unapproved indication [Unknown]
  - Dysphonia [Unknown]
  - Device malfunction [Unknown]

NARRATIVE: CASE EVENT DATE: 20220503
